FAERS Safety Report 20869595 (Version 1)
Quarter: 2022Q2

REPORT INFORMATION
  Report Type: Spontaneous
  Country: US (occurrence: None)
  Receive Date: 20220525
  Receipt Date: 20220525
  Transmission Date: 20220720
  Serious: Yes (Death)
  Sender: FDA-Public Use
  Company Number: US-ROCHE-3097911

PATIENT
  Sex: Female

DRUGS (2)
  1. OCREVUS [Suspect]
     Active Substance: OCRELIZUMAB
     Indication: Multiple sclerosis
     Route: 065
  2. COVID-19 VACCINE [Concomitant]
     Dosage: DOUBLY VACCINATED AND DOUBLY BOOSTED

REACTIONS (2)
  - COVID-19 [Fatal]
  - COVID-19 pneumonia [Fatal]
